FAERS Safety Report 6162095-7 (Version None)
Quarter: 2009Q2

REPORT INFORMATION
  Report Type: 
  Country: None (occurrence: None)
  Receive Date: 20090417
  Receipt Date: 20090417
  Transmission Date: 20091009
  Serious: Yes (Other)
  Sender: FDA-Public Use
  Company Number: None

PATIENT
  Age: 57 Year
  Sex: Female
  Weight: 45.8133 kg

DRUGS (9)
  1. RISPERIDONE [Suspect]
     Indication: BIPOLAR DISORDER
     Dosage: 3MG AT BEDTIME ORAL
     Route: 048
     Dates: start: 20080901
  2. RISPERIDONE [Suspect]
     Indication: MANIA
     Dosage: 3MG AT BEDTIME ORAL
     Route: 048
     Dates: start: 20080901
  3. LEVOXYL [Concomitant]
  4. GABAPENTIN [Concomitant]
  5. BUPROPION HCL [Concomitant]
  6. ESTRADIOL [Concomitant]
  7. MEDROXYPROGESTERONE [Concomitant]
  8. CLONAZEPAM [Concomitant]
  9. ALENDRONATE [Concomitant]

REACTIONS (5)
  - DROOLING [None]
  - DRY MOUTH [None]
  - SWOLLEN TONGUE [None]
  - TREMOR [None]
  - YAWNING [None]
